FAERS Safety Report 9909820 (Version 2)
Quarter: 2014Q1

REPORT INFORMATION
  Report Type: Spontaneous
  Country: US (occurrence: None)
  Receive Date: 20140212
  Receipt Date: 20140218
  Transmission Date: 20141002
  Serious: Yes (Hospitalization)
  Sender: FDA-Public Use
  Company Number: 7267533

PATIENT
  Age: 64 Year
  Sex: Male

DRUGS (8)
  1. LEVOTHYROXINE [Suspect]
     Indication: PRODUCT USED FOR UNKNOWN INDICATION
  2. METFORMIN (METFORMIN) [Suspect]
     Indication: PRODUCT USED FOR UNKNOWN INDICATION
  3. SIMVASTATIN (SIMVASTATIN) [Suspect]
     Indication: BLOOD CHOLESTEROL
  4. ASPIRIN (ACETYLSALICYLIC ACID) [Concomitant]
  5. CARVEDILOL [Concomitant]
  6. INSULIN GLARGINE [Concomitant]
  7. INSULIN ASPART [Concomitant]
  8. LISINOPRIL [Concomitant]

REACTIONS (3)
  - Rhabdomyolysis [None]
  - Autoimmune disorder [None]
  - Glycosylated haemoglobin increased [None]
